FAERS Safety Report 23299116 (Version 1)
Quarter: 2023Q4

REPORT INFORMATION
  Report Type: Spontaneous
  Country: US (occurrence: US)
  Receive Date: 20231215
  Receipt Date: 20231215
  Transmission Date: 20240109
  Serious: No
  Sender: FDA-Public Use
  Company Number: US-ENDO PHARMACEUTICALS INC-2023-001348

PATIENT
  Age: 62 Year
  Sex: Male
  Weight: 99.773 kg

DRUGS (18)
  1. XIAFLEX [Suspect]
     Active Substance: COLLAGENASE CLOSTRIDIUM HISTOLYTICUM
     Indication: Peyronie^s disease
     Dosage: UNK UNKNOWN, UNKNOWN (CYCLE ONE, FIRST INJECTION)
     Route: 051
     Dates: start: 20200925
  2. XIAFLEX [Suspect]
     Active Substance: COLLAGENASE CLOSTRIDIUM HISTOLYTICUM
     Dosage: UNK UNKNOWN, UNKNOWN (CYCLE ONE, SECOND INJECTION)
     Route: 051
  3. XIAFLEX [Suspect]
     Active Substance: COLLAGENASE CLOSTRIDIUM HISTOLYTICUM
     Dosage: UNK UNKNOWN, UNKNOWN (CYCLE TWO, FIRST INJECTION)
     Route: 051
     Dates: start: 20201105
  4. XIAFLEX [Suspect]
     Active Substance: COLLAGENASE CLOSTRIDIUM HISTOLYTICUM
     Dosage: UNK UNKNOWN, UNKNOWN (CYCLE TWO, SECOND INJECTION)
     Route: 051
     Dates: start: 20201109
  5. XIAFLEX [Suspect]
     Active Substance: COLLAGENASE CLOSTRIDIUM HISTOLYTICUM
     Dosage: UNK UNKNOWN, UNKNOWN (CYCLE THREE, FIRST INJECTION)
     Route: 051
     Dates: start: 20201221
  6. XIAFLEX [Suspect]
     Active Substance: COLLAGENASE CLOSTRIDIUM HISTOLYTICUM
     Dosage: UNK UNKNOWN, UNKNOWN (CYCLE THREE, SECOND INJECTION)
     Route: 051
     Dates: start: 20201228
  7. XIAFLEX [Suspect]
     Active Substance: COLLAGENASE CLOSTRIDIUM HISTOLYTICUM
     Dosage: UNK UNKNOWN, UNKNOWN (CYCLE FOUR, FIRST INJECTION)
     Route: 051
     Dates: start: 20210208
  8. XIAFLEX [Suspect]
     Active Substance: COLLAGENASE CLOSTRIDIUM HISTOLYTICUM
     Dosage: UNK UNKNOWN, UNKNOWN (CYCLE FOUR, SECOND INJECTION)
     Route: 051
     Dates: start: 20210215
  9. XIAFLEX [Suspect]
     Active Substance: COLLAGENASE CLOSTRIDIUM HISTOLYTICUM
     Dosage: UNK UNKNOWN, UNKNOWN (CYCLE FIVE, INJECTION FIRST)
     Route: 051
     Dates: start: 20210329
  10. XIAFLEX [Suspect]
     Active Substance: COLLAGENASE CLOSTRIDIUM HISTOLYTICUM
     Dosage: UNK UNKNOWN, UNKNOWN (CYCLE FIVE, SECOND INJECTION)
     Route: 051
     Dates: start: 20210405
  11. XIAFLEX [Suspect]
     Active Substance: COLLAGENASE CLOSTRIDIUM HISTOLYTICUM
     Dosage: UNK UNKNOWN, UNKNOWN (CYCLE SIX, FIRST INJECTION)
     Route: 051
     Dates: start: 20210520
  12. XIAFLEX [Suspect]
     Active Substance: COLLAGENASE CLOSTRIDIUM HISTOLYTICUM
     Dosage: UNK UNKNOWN, UNKNOWN (CYCLE SIX, SECOND INJECTION)
     Route: 051
     Dates: start: 20210603
  13. XIAFLEX [Suspect]
     Active Substance: COLLAGENASE CLOSTRIDIUM HISTOLYTICUM
     Dosage: UNK UNKNOWN, UNKNOWN (CYCLE SEVEN, FIRST INJECTION)
     Route: 051
     Dates: start: 20210729
  14. XIAFLEX [Suspect]
     Active Substance: COLLAGENASE CLOSTRIDIUM HISTOLYTICUM
     Dosage: UNK UNKNOWN, UNKNOWN (CYCLE SEVEN, SECOND INJECTION)
     Route: 051
     Dates: start: 20210809
  15. XIAFLEX [Suspect]
     Active Substance: COLLAGENASE CLOSTRIDIUM HISTOLYTICUM
     Dosage: UNK UNKNOWN, UNKNOWN (CYCLE EIGHT, FIRST INJECTION)
     Route: 051
     Dates: start: 20210921
  16. XIAFLEX [Suspect]
     Active Substance: COLLAGENASE CLOSTRIDIUM HISTOLYTICUM
     Dosage: UNK UNKNOWN, UNKNOWN (CYCLE EIGHT, SECOND INJECTION)
     Route: 051
     Dates: start: 20210924
  17. SERTRALINE [Concomitant]
     Active Substance: SERTRALINE HYDROCHLORIDE
     Indication: Product used for unknown indication
     Dosage: 100 MG, DAILY
     Route: 065
  18. PRILOSEC [Concomitant]
     Active Substance: OMEPRAZOLE MAGNESIUM
     Indication: Product used for unknown indication
     Dosage: 20 MG, DAILY
     Route: 065

REACTIONS (5)
  - Peyronie^s disease [Not Recovered/Not Resolved]
  - Condition aggravated [Not Recovered/Not Resolved]
  - Ejaculation failure [Not Recovered/Not Resolved]
  - Inappropriate schedule of product administration [Unknown]
  - Off label use [Unknown]

NARRATIVE: CASE EVENT DATE: 20201109
